FAERS Safety Report 4524050-X (Version None)
Quarter: 2004Q4

REPORT INFORMATION
  Report Type: 
  Country: None (occurrence: None)
  Receive Date: 20041209
  Receipt Date: 20041125
  Transmission Date: 20050328
  Serious: Yes (Hospitalization)
  Sender: FDA-Public Use
  Company Number: 240751

PATIENT
  Sex: 0

DRUGS (1)
  1. ACTRAPID (INSULIN HUMAN) SOLUTION FOR INJECTION [Suspect]
     Indication: DIABETES MELLITUS INSULIN-DEPENDENT
     Dosage: 6 IU, SINGLE

REACTIONS (3)
  - BRAIN OEDEMA [None]
  - RENAL FAILURE [None]
  - RESPIRATORY ARREST [None]
